FAERS Safety Report 4411203-4 (Version None)
Quarter: 2004Q3

REPORT INFORMATION
  Report Type: 
  Country: None (occurrence: None)
  Receive Date: 20040727
  Receipt Date: 20040617
  Transmission Date: 20050211
  Serious: Yes (Hospitalization)
  Sender: FDA-Public Use
  Company Number: CH-JNJFOC-20040604370

PATIENT
  Age: 71 Year
  Sex: Male

DRUGS (3)
  1. TRAMAL (TRAMADOL HYDROCHLORIDE) UNSPECIFIED [Suspect]
     Indication: PAIN
     Dosage: ORAL
     Route: 048
  2. IMOVANE (ZOPICLONE) UNKNOWN [Suspect]
     Indication: SLEEP DISORDER
     Dosage: ORAL
     Route: 048
     Dates: start: 20040429, end: 20040501
  3. REMERON [Suspect]
     Dosage: ORAL
     Route: 048

REACTIONS (3)
  - CONFUSIONAL STATE [None]
  - DRUG INTERACTION [None]
  - PAIN [None]
